FAERS Safety Report 7232003-6 (Version None)
Quarter: 2011Q1

REPORT INFORMATION
  Report Type: 
  Country: None (occurrence: None)
  Receive Date: 20110118
  Receipt Date: 20110112
  Transmission Date: 20110831
  Serious: Yes (Hospitalization, Disabling, Other)
  Sender: FDA-Public Use
  Company Number: US-MERCK-0706USA00955

PATIENT
  Age: 61 Year
  Sex: Female
  Weight: 73 kg

DRUGS (2)
  1. FOSAMAX [Suspect]
     Route: 048
     Dates: start: 20000208
  2. FOSAMAX [Suspect]
     Indication: OSTEOPOROSIS
     Route: 048
     Dates: start: 19990701, end: 20060501

REACTIONS (30)
  - DYSPNOEA [None]
  - CHEST PAIN [None]
  - AORTIC DILATATION [None]
  - REFLUX OESOPHAGITIS [None]
  - ANAEMIA [None]
  - CORONARY ARTERY STENOSIS [None]
  - DIZZINESS [None]
  - TINNITUS [None]
  - PERIPHERAL ARTERIAL OCCLUSIVE DISEASE [None]
  - CHRONIC OBSTRUCTIVE PULMONARY DISEASE [None]
  - MITRAL VALVE INCOMPETENCE [None]
  - GASTRITIS [None]
  - TOOTH LOSS [None]
  - EXOSTOSIS [None]
  - BONE DENSITY DECREASED [None]
  - CARDIAC DISORDER [None]
  - EOSINOPHILIC OESOPHAGITIS [None]
  - PELVIC HAEMATOMA [None]
  - SLEEP APNOEA SYNDROME [None]
  - HIATUS HERNIA [None]
  - OSTEOARTHRITIS [None]
  - GASTROOESOPHAGEAL REFLUX DISEASE [None]
  - GASTRIC DISORDER [None]
  - ABDOMINAL PAIN [None]
  - PALPITATIONS [None]
  - SPINAL COMPRESSION FRACTURE [None]
  - OSTEOMYELITIS [None]
  - CORONARY ARTERY DISEASE [None]
  - CARDIAC MURMUR [None]
  - ADVERSE DRUG REACTION [None]
